FAERS Safety Report 17426587 (Version 2)
Quarter: 2020Q1

REPORT INFORMATION
  Report Type: Spontaneous
  Country: FR (occurrence: FR)
  Receive Date: 20200217
  Receipt Date: 20200305
  Transmission Date: 20200409
  Serious: Yes (Other)
  Sender: FDA-Public Use
  Company Number: FR-BAYER-2020-023680

PATIENT
  Age: 53 Year
  Sex: Female

DRUGS (10)
  1. SORAFENIB (RAF KINASE INHIBITOR) [Suspect]
     Active Substance: SORAFENIB
     Indication: PAPILLARY THYROID CANCER
     Dosage: 200 MG EVERY 4 DAYS
  2. SORAFENIB (RAF KINASE INHIBITOR) [Suspect]
     Active Substance: SORAFENIB
     Indication: PAPILLARY THYROID CANCER
     Dosage: 200 MG, Q72HR
  3. TRAMADOL. [Concomitant]
     Active Substance: TRAMADOL
  4. SORAFENIB (RAF KINASE INHIBITOR) [Suspect]
     Active Substance: SORAFENIB
     Indication: PAPILLARY THYROID CANCER
     Dosage: 200 MG, BID
  5. SORAFENIB (RAF KINASE INHIBITOR) [Suspect]
     Active Substance: SORAFENIB
     Indication: PAPILLARY THYROID CANCER
     Dosage: 200 MG, QOD
  6. PARACETAMOL [Concomitant]
     Active Substance: ACETAMINOPHEN
  7. LEVOTHYROX [Concomitant]
     Active Substance: LEVOTHYROXINE
  8. SORAFENIB (RAF KINASE INHIBITOR) [Suspect]
     Active Substance: SORAFENIB
     Indication: PAPILLARY THYROID CANCER
     Dosage: 400 MG, BID
  9. SORAFENIB (RAF KINASE INHIBITOR) [Suspect]
     Active Substance: SORAFENIB
     Indication: PAPILLARY THYROID CANCER
     Dosage: 200 MG, QD
  10. OXAZEPAM. [Concomitant]
     Active Substance: OXAZEPAM

REACTIONS (7)
  - Vaginal haemorrhage [None]
  - Mucosal inflammation [None]
  - Palmar-plantar erythrodysaesthesia syndrome [Recovering/Resolving]
  - Alopecia [None]
  - Papillary thyroid cancer [None]
  - Mouth haemorrhage [None]
  - Anal haemorrhage [None]
